FAERS Safety Report 13377150 (Version 1)
Quarter: 2017Q1

REPORT INFORMATION
  Report Type: Spontaneous
  Country: US (occurrence: US)
  Receive Date: 20170328
  Receipt Date: 20170328
  Transmission Date: 20170429
  Serious: Yes (Other)
  Sender: FDA-Public Use
  Company Number: None

PATIENT
  Age: 66 Year
  Sex: Female
  Weight: 85.5 kg

DRUGS (4)
  1. MAXZIDE [Concomitant]
     Active Substance: HYDROCHLOROTHIAZIDE\TRIAMTERENE
  2. ALEVE [Concomitant]
     Active Substance: NAPROXEN SODIUM
  3. CONTRAVE [Suspect]
     Active Substance: BUPROPION HYDROCHLORIDE\NALTREXONE HYDROCHLORIDE
     Indication: WEIGHT CONTROL
     Dosage: ?          QUANTITY:70 TABLET(S);?
     Route: 048
     Dates: start: 20170327, end: 20170328
  4. ADIVAN [Concomitant]

REACTIONS (5)
  - Loss of consciousness [None]
  - Vomiting [None]
  - Dizziness [None]
  - Hypersomnia [None]
  - Nausea [None]

NARRATIVE: CASE EVENT DATE: 20170327
